FAERS Safety Report 9619550 (Version 2)
Quarter: 2013Q4

REPORT INFORMATION
  Report Type: Spontaneous
  Country: FR (occurrence: FR)
  Receive Date: 20131014
  Receipt Date: 20131206
  Transmission Date: 20140711
  Serious: Yes (Other)
  Sender: FDA-Public Use
  Company Number: FR-PFIZER INC-2013288953

PATIENT
  Age: 69 Year
  Sex: Female
  Weight: 82 kg

DRUGS (9)
  1. EFFEXOR LP [Suspect]
     Indication: DEPRESSION
     Dosage: 300 MG, DAILY
     Route: 048
     Dates: start: 20131001, end: 20131008
  2. EFFEXOR LP [Suspect]
     Indication: DYSTHYMIC DISORDER
  3. ABILIFY [Suspect]
     Indication: DYSTHYMIC DISORDER
     Dosage: 15 MG, DAILY
     Route: 048
     Dates: start: 20130826, end: 20131018
  4. BROMAZEPAM [Concomitant]
     Indication: ANXIETY
     Dosage: 6 MG, 1X/DAY
     Route: 048
  5. BETASERC [Concomitant]
  6. LEVOTHYROX [Concomitant]
  7. AVLOCARDYL [Concomitant]
  8. PARIET [Concomitant]
  9. CRESTOR [Concomitant]

REACTIONS (6)
  - Bipolar disorder [Unknown]
  - Fall [Recovered/Resolved]
  - Tremor [Recovered/Resolved]
  - Vertigo [Recovered/Resolved]
  - Confusional state [Recovered/Resolved]
  - Balance disorder [Recovered/Resolved]
